FAERS Safety Report 21719355 (Version 1)
Quarter: 2022Q4

REPORT INFORMATION
  Report Type: Spontaneous
  Country: DE (occurrence: DE)
  Receive Date: 20221213
  Receipt Date: 20221213
  Transmission Date: 20230112
  Serious: Yes (Life-Threatening, Hospitalization, Disabling, Other)
  Sender: FDA-Public Use
  Company Number: None

PATIENT
  Age: 56 Year
  Sex: Male
  Weight: 75 kg

DRUGS (1)
  1. DALFAMPRIDINE [Suspect]
     Active Substance: DALFAMPRIDINE
     Indication: Multiple sclerosis
     Dosage: 2X1, VARIOUS BATCHES
     Route: 050
     Dates: start: 201907, end: 202208

REACTIONS (5)
  - Renal failure [Recovered/Resolved]
  - Neoplasm malignant [Unknown]
  - Ureteric stenosis [Recovered/Resolved]
  - Kidney fibrosis [Recovered/Resolved with Sequelae]
  - Cystitis [Unknown]

NARRATIVE: CASE EVENT DATE: 20211001
